FAERS Safety Report 5673036-0 (Version None)
Quarter: 2008Q1

REPORT INFORMATION
  Report Type: 
  Country: None (occurrence: None)
  Receive Date: 20080319
  Receipt Date: 20080204
  Transmission Date: 20080703
  Serious: No
  Sender: FDA-Public Use
  Company Number: US-ASTRAZENECA-2008UW02465

PATIENT
  Age: 62 Year
  Sex: Male
  Weight: 86.2 kg

DRUGS (8)
  1. SYMBICORT [Suspect]
     Indication: ASTHMA
     Dosage: 160/4.5 MG TWO PUFFS DAILY
     Route: 055
     Dates: start: 20080131
  2. SYMBICORT [Suspect]
     Indication: EMPHYSEMA
     Dosage: 160/4.5 MG TWO PUFFS DAILY
     Route: 055
     Dates: start: 20080131
  3. OMEPRAZOLE [Concomitant]
  4. BISOPROLOL FUMARATE [Concomitant]
  5. SYNTHROID [Concomitant]
  6. LODIPINE [Concomitant]
  7. ASPIRIN [Concomitant]
  8. XALATAN [Concomitant]

REACTIONS (4)
  - HEADACHE [None]
  - INFLUENZA [None]
  - MUSCULOSKELETAL DISCOMFORT [None]
  - PAIN [None]
